FAERS Safety Report 24346019 (Version 1)
Quarter: 2024Q3

REPORT INFORMATION
  Report Type: Spontaneous
  Country: US (occurrence: US)
  Receive Date: 20240920
  Receipt Date: 20240920
  Transmission Date: 20241016
  Serious: No
  Sender: MERCK
  Company Number: US-009507513-2409USA005761

PATIENT
  Sex: Male

DRUGS (3)
  1. KEYTRUDA [Suspect]
     Active Substance: PEMBROLIZUMAB
     Indication: Renal cell carcinoma
     Dosage: 200 MG 1 X 3 WEEKS (Q3W)
     Route: 042
     Dates: start: 20220330, end: 20231016
  2. AXITINIB [Suspect]
     Active Substance: AXITINIB
     Indication: Renal cell carcinoma
     Dosage: 5 MG, 2 X DAY (BID)
     Route: 048
     Dates: start: 20220330, end: 2022
  3. AXITINIB [Suspect]
     Active Substance: AXITINIB
     Dosage: 5 MG, 2 X DAY (BID)
     Route: 048
     Dates: start: 2022, end: 20231016

REACTIONS (3)
  - Fatigue [Recovered/Resolved]
  - Fatigue [Recovered/Resolved]
  - Diarrhoea [Recovered/Resolved]

NARRATIVE: CASE EVENT DATE: 20220523
